FAERS Safety Report 4494903-X (Version None)
Quarter: 2004Q4

REPORT INFORMATION
  Report Type: 
  Country: None (occurrence: None)
  Receive Date: 20041103
  Receipt Date: 20041022
  Transmission Date: 20050328
  Serious: Yes (Death)
  Sender: FDA-Public Use
  Company Number: BDI-006589

PATIENT
  Age: 95 Year
  Sex: Female

DRUGS (4)
  1. ISOVUE-300 [Suspect]
     Indication: COMPUTERISED TOMOGRAM
     Dosage: IV
     Route: 042
     Dates: start: 20040929, end: 20040929
  2. ISOVUE-300 [Suspect]
     Indication: DYSPNOEA
     Dosage: IV
     Route: 042
     Dates: start: 20040929, end: 20040929
  3. XOPENEX [Concomitant]
  4. ANTIBIOTICS [Concomitant]

REACTIONS (3)
  - APNOEA [None]
  - ELECTROMECHANICAL DISSOCIATION [None]
  - PULSE ABSENT [None]
